FAERS Safety Report 8004859-0 (Version None)
Quarter: 2011Q4

REPORT INFORMATION
  Report Type: 
  Country: None (occurrence: None)
  Receive Date: 20111223
  Receipt Date: 20111214
  Transmission Date: 20120403
  Serious: Yes (Other)
  Sender: FDA-Public Use
  Company Number: DE-B.I. PHARMACEUTICALS,INC./RIDGEFIELD-2011-DE-06813DE

PATIENT
  Sex: Female
  Weight: 60 kg

DRUGS (14)
  1. EZETIMIBE [Concomitant]
     Dosage: 1 ANZ
  2. METFORMIN AL [Concomitant]
     Dosage: 0.5 ANZ
  3. PANTOPRAZOL HEXAL [Concomitant]
     Dosage: 1 ANZ
  4. PREDNIHEXAL [Concomitant]
     Dosage: 5 MG
  5. PRADAXA [Suspect]
     Indication: ATRIAL FIBRILLATION
  6. NEBIVOLOL STADA [Concomitant]
     Dosage: 5 MG
  7. ACTRAPHANE [Concomitant]
  8. TORASEMID AL [Concomitant]
     Dosage: 10 MG
  9. LERCANIDIPINE [Concomitant]
     Dosage: 20 MG
  10. NOVODIGAL MITE [Concomitant]
     Dosage: 1 ANZ
  11. URSO FALK [Concomitant]
     Dosage: 750 MG
  12. PRADAXA [Suspect]
     Indication: ARRHYTHMIA
     Dosage: 220 MG
     Route: 048
     Dates: start: 20111019, end: 20111121
  13. ATACAND [Concomitant]
     Dosage: 1 ANZ
  14. CREON [Concomitant]
     Dosage: 4 ANZ

REACTIONS (2)
  - MOUTH HAEMORRHAGE [None]
  - LIVER FUNCTION TEST ABNORMAL [None]
